FAERS Safety Report 16187266 (Version 1)
Quarter: 2019Q2

REPORT INFORMATION
  Report Type: Report from Study
  Country: None (occurrence: US)
  Receive Date: 20190411
  Receipt Date: 20190411
  Transmission Date: 20190711
  Serious: Yes (Hospitalization)
  Sender: FDA-Public Use
  Company Number: US-ABBVIE-19K-163-2734102-00

PATIENT
  Age: 61 Year
  Sex: Male

DRUGS (1)
  1. VENCLEXTA [Suspect]
     Active Substance: VENETOCLAX
     Indication: CHRONIC LYMPHOCYTIC LEUKAEMIA
     Route: 048
     Dates: start: 20190122, end: 2019

REACTIONS (4)
  - Chest pain [Unknown]
  - Myocardial infarction [Unknown]
  - Arterial occlusive disease [Unknown]
  - Renal impairment [Unknown]

NARRATIVE: CASE EVENT DATE: 20190401
